FAERS Safety Report 9805315 (Version 1)
Quarter: 2014Q1

REPORT INFORMATION
  Report Type: Spontaneous
  Country: US (occurrence: None)
  Receive Date: 20140108
  Receipt Date: 20140108
  Transmission Date: 20141002
  Serious: Yes (Life-Threatening, Hospitalization, Disabling, Other)
  Sender: FDA-Public Use
  Company Number: None

PATIENT
  Age: 63 Year
  Sex: Male
  Weight: 70.31 kg

DRUGS (12)
  1. INVEGA SUSTENNA [Suspect]
     Indication: SCHIZOAFFECTIVE DISORDER
     Dates: start: 20130716
  2. INVEGA SUSTENNA [Suspect]
     Indication: BIPOLAR DISORDER
     Dates: start: 20130716
  3. INVEGA SUSTENNA [Suspect]
     Dates: start: 20130716
  4. NORVASC [Concomitant]
  5. GOTA KOLA CASCARA [Concomitant]
  6. CAYENNE PEPPER [Concomitant]
  7. GARLIC POWDER [Concomitant]
  8. ECHINACEA [Concomitant]
  9. KELP [Concomitant]
  10. BABY ASPIRIN [Concomitant]
  11. VITAMIN E [Concomitant]
  12. FERRIC REFX [Concomitant]

REACTIONS (15)
  - Monoparesis [None]
  - Pain [None]
  - Dental caries [None]
  - Loss of consciousness [None]
  - Oropharyngeal pain [None]
  - Dizziness [None]
  - Balance disorder [None]
  - Constipation [None]
  - Nail disorder [None]
  - Metabolic disorder [None]
  - Nausea [None]
  - Hypoaesthesia [None]
  - Insomnia [None]
  - Irritability [None]
  - Vision blurred [None]
